FAERS Safety Report 6883196-1 (Version None)
Quarter: 2010Q3

REPORT INFORMATION
  Report Type: 
  Country: None (occurrence: None)
  Receive Date: 20100727
  Receipt Date: 20070919
  Transmission Date: 20110219
  Serious: Yes (Hospitalization, Other)
  Sender: FDA-Public Use
  Company Number: US-PFIZER INC-2007034297

PATIENT
  Sex: Male
  Weight: 66.7 kg

DRUGS (3)
  1. CELEBREX [Suspect]
     Indication: ARTHRITIS
     Dates: start: 20011219
  2. VIOXX [Suspect]
     Indication: ARTHRALGIA
     Dates: start: 20010702
  3. NITROGLYCERIN [Concomitant]
     Indication: CARDIAC DISORDER
     Dates: start: 20000721, end: 20020720

REACTIONS (1)
  - MYOCARDIAL INFARCTION [None]
